FAERS Safety Report 8605771-6 (Version None)
Quarter: 2012Q3

REPORT INFORMATION
  Report Type: 
  Country: None (occurrence: None)
  Receive Date: 20120820
  Receipt Date: 20120815
  Transmission Date: 20120928
  Serious: No
  Sender: FDA-Public Use
  Company Number: US-PFIZER INC-2012199487

PATIENT
  Age: 8 Month
  Sex: Male

DRUGS (1)
  1. PEDIATRIC ADVIL [Suspect]
     Indication: PYREXIA
     Dosage: UNK, EVERY 6 HRS
     Route: 048

REACTIONS (1)
  - RASH [None]
